FAERS Safety Report 9969600 (Version 2)
Quarter: 2014Q1

REPORT INFORMATION
  Report Type: Spontaneous
  Country: US (occurrence: US)
  Receive Date: 20140306
  Receipt Date: 20140306
  Transmission Date: 20141002
  Serious: No
  Sender: FDA-Public Use
  Company Number: US-DRREDDYS-USA/USA/13/0034166

PATIENT
  Age: 87 Year
  Sex: Male
  Weight: 65.38 kg

DRUGS (3)
  1. CLOPIDOGREL BISULFATE 75 MG [Suspect]
     Indication: EMBOLIC STROKE
     Route: 048
     Dates: start: 20130802, end: 20130805
  2. CARVEDILOL [Concomitant]
     Indication: PRODUCT USED FOR UNKNOWN INDICATION
     Route: 065
  3. LISINOPRIL [Concomitant]
     Indication: PRODUCT USED FOR UNKNOWN INDICATION
     Route: 065

REACTIONS (5)
  - Glossodynia [Recovered/Resolved]
  - Oral discomfort [Recovered/Resolved]
  - Oesophageal pain [Recovered/Resolved]
  - Product taste abnormal [Unknown]
  - Product quality issue [Unknown]
